FAERS Safety Report 4506852-9 (Version None)
Quarter: 2004Q4

REPORT INFORMATION
  Report Type: 
  Country: None (occurrence: None)
  Receive Date: 20041122
  Receipt Date: 20040913
  Transmission Date: 20050328
  Serious: Yes (Other)
  Sender: FDA-Public Use
  Company Number: GBWYE036813SEP04

PATIENT
  Sex: Female

DRUGS (2)
  1. ENBREL [Suspect]
     Indication: PSORIATIC ARTHROPATHY
     Dosage: FIRST DOSE
     Dates: start: 20040912
  2. CO-CODAMAOL [Concomitant]

REACTIONS (3)
  - ABASIA [None]
  - SYNCOPE [None]
  - VOMITING [None]
